FAERS Safety Report 14518271 (Version 2)
Quarter: 2018Q1

REPORT INFORMATION
  Report Type: Spontaneous
  Country: US (occurrence: US)
  Receive Date: 20180212
  Receipt Date: 20180214
  Transmission Date: 20180509
  Serious: No
  Sender: FDA-Public Use
  Company Number: US-PFIZER INC-2018058754

PATIENT
  Age: 57 Year
  Sex: Female
  Weight: 99.79 kg

DRUGS (1)
  1. CHANTIX [Suspect]
     Active Substance: VARENICLINE TARTRATE
     Dosage: UNK

REACTIONS (10)
  - Influenza [Unknown]
  - Nausea [Unknown]
  - Headache [Unknown]
  - Malaise [Unknown]
  - Fatigue [Unknown]
  - Abdominal pain [Unknown]
  - Somnolence [Unknown]
  - Cough [Unknown]
  - Feeling of body temperature change [Unknown]
  - Nasopharyngitis [Unknown]
